FAERS Safety Report 21354189 (Version 2)
Quarter: 2022Q4

REPORT INFORMATION
  Report Type: Report from Study
  Country: US (occurrence: US)
  Receive Date: 20220920
  Receipt Date: 20221115
  Transmission Date: 20230113
  Serious: Yes (Hospitalization, Other)
  Sender: FDA-Public Use
  Company Number: US-BRISTOL-MYERS SQUIBB COMPANY-2022-106959

PATIENT
  Age: 64 Year
  Sex: Female
  Weight: 52.62 kg

DRUGS (2)
  1. REVLIMID [Suspect]
     Active Substance: LENALIDOMIDE
     Indication: Plasma cell myeloma
     Dosage: DAILY ON DAYS 1 TO 21 OF EACH CYCLE. TAKE 1 HOUR BEFORE DARATUMUMAB. TAKE AT THE SAME TIME DAILY?EXP
     Route: 048
     Dates: start: 20191015
  2. DARATUMUMAB [Suspect]
     Active Substance: DARATUMUMAB
     Indication: Product used for unknown indication
     Route: 065

REACTIONS (2)
  - Diarrhoea [Unknown]
  - Cardio-respiratory arrest [Recovered/Resolved]
